FAERS Safety Report 11121323 (Version 1)
Quarter: 2015Q2

REPORT INFORMATION
  Report Type: Spontaneous
  Country: PL (occurrence: None)
  Receive Date: 20150515
  Receipt Date: 20150515
  Transmission Date: 20150821
  Serious: Yes (Death, Life-Threatening, Hospitalization, Other)
  Sender: FDA-Public Use
  Company Number: FK201502224

PATIENT
  Age: 8 Year
  Sex: Male

DRUGS (10)
  1. ETANERCEPT (ETANERCEPT) [Suspect]
     Active Substance: ETANERCEPT
     Indication: PRODUCT USED FOR UNKNOWN INDICATION
  2. CICLOSPORIN (CICLOSPORIN) [Suspect]
     Active Substance: CYCLOSPORINE
     Indication: PROPHYLAXIS AGAINST GRAFT VERSUS HOST DISEASE
     Dates: start: 20101114
  3. COTRIMOXAZOLE (BACTRIM) [Concomitant]
  4. METHYLPREDNISOLONE. [Suspect]
     Active Substance: METHYLPREDNISOLONE
     Indication: IMMUNOSUPPRESSANT DRUG THERAPY
  5. MYCOPHENOLATE MOFETIL (MYCOPHENOLATE MOFETIL) [Suspect]
     Active Substance: MYCOPHENOLATE MOFETIL
     Indication: IMMUNOSUPPRESSANT DRUG THERAPY
  6. RITUXIMAB [Concomitant]
     Active Substance: RITUXIMAB
  7. FLUCONAZOLE. [Concomitant]
     Active Substance: FLUCONAZOLE
  8. FILGRASTIM [Concomitant]
     Active Substance: FILGRASTIM
  9. PREDNISOLONE (PREDNISOLONE) [Suspect]
     Active Substance: PREDNISOLONE
     Indication: IMMUNOSUPPRESSANT DRUG THERAPY
  10. METHOTREXATE (MANUFACTUTER UNKNOWN) (METHOTREXATE) [Suspect]
     Active Substance: METHOTREXATE SODIUM
     Indication: PROPHYLAXIS AGAINST GRAFT VERSUS HOST DISEASE
     Dosage: UNKNOWN, 1 IN 1 ONCE, UNKNOWN
     Dates: start: 20101114

REACTIONS (7)
  - Ecthyma [None]
  - Haemorrhagic necrotic pancreatitis [None]
  - Graft versus host disease [None]
  - Multi-organ failure [None]
  - Keratitis [None]
  - Circulatory collapse [None]
  - Fusarium infection [None]
